FAERS Safety Report 9753527 (Version 1)
Quarter: 2013Q4

REPORT INFORMATION
  Report Type: Spontaneous
  Country: BR (occurrence: BR)
  Receive Date: 20131213
  Receipt Date: 20131213
  Transmission Date: 20140711
  Serious: Yes (Death)
  Sender: FDA-Public Use
  Company Number: BR-PFIZER INC-2013354675

PATIENT
  Sex: Male

DRUGS (3)
  1. SUTENT [Suspect]
     Indication: RENAL CANCER
     Dosage: 2 CAPSULES OF 37.5 MG (75 MG), 1X/DAY
     Dates: end: 2013
  2. DIOVAN [Concomitant]
  3. NIFEDIPINE [Concomitant]

REACTIONS (1)
  - Death [Fatal]
